FAERS Safety Report 9901349 (Version 2)
Quarter: 2014Q1

REPORT INFORMATION
  Report Type: Spontaneous
  Country: US (occurrence: US)
  Receive Date: 20140217
  Receipt Date: 20140217
  Transmission Date: 20141002
  Serious: Yes (Hospitalization)
  Sender: FDA-Public Use
  Company Number: US-GILEAD-2011-0040909

PATIENT
  Sex: Female

DRUGS (5)
  1. LETAIRIS [Suspect]
     Indication: PRODUCT USED FOR UNKNOWN INDICATION
     Route: 048
     Dates: start: 20080215, end: 20110612
  2. VELETRI [Concomitant]
  3. REMODULIN [Concomitant]
  4. TRACLEER [Concomitant]
  5. TYVASO [Concomitant]

REACTIONS (1)
  - Oedema [Unknown]
